FAERS Safety Report 8909360 (Version 2)
Quarter: 2013Q1

REPORT INFORMATION
  Report Type: Spontaneous
  Country: BR (occurrence: BR)
  Receive Date: 20121114
  Receipt Date: 20130108
  Transmission Date: 20140127
  Serious: Yes (Other)
  Sender: FDA-Public Use
  Company Number: BR-AMGEN-BRASP2012071955

PATIENT
  Age: 47 Year
  Sex: Female
  Weight: 155 kg

DRUGS (2)
  1. ENBREL [Suspect]
     Indication: ANKYLOSING SPONDYLITIS
     Dosage: 50 MG, ONCE WEEKLY
     Route: 058
     Dates: start: 201101, end: 201204
  2. METHOTREXATE [Concomitant]
     Indication: PRODUCT USED FOR UNKNOWN INDICATION
     Dosage: WEEKLY
     Route: 048
     Dates: start: 201010

REACTIONS (3)
  - Wrong technique in drug usage process [Recovered/Resolved]
  - Gallbladder disorder [Recovered/Resolved]
  - Injection site pain [Recovered/Resolved]
